FAERS Safety Report 16963120 (Version 1)
Quarter: 2019Q4

REPORT INFORMATION
  Report Type: Report from Study
  Country: US (occurrence: US)
  Receive Date: 20191025
  Receipt Date: 20191025
  Transmission Date: 20200122
  Serious: Yes (Disabling, Other)
  Sender: FDA-Public Use
  Company Number: US-MYLANLABS-2019M1100198

PATIENT
  Age: 58 Year
  Sex: Female

DRUGS (2)
  1. CYTARABINE. [Suspect]
     Active Substance: CYTARABINE
     Indication: ACUTE MYELOID LEUKAEMIA
     Dosage: 185 MILLIGRAM, QD
     Route: 042
     Dates: start: 20190506, end: 20190514
  2. IDARUBICIN [Suspect]
     Active Substance: IDARUBICIN
     Indication: ACUTE MYELOID LEUKAEMIA
     Dosage: 167 MILLIGRAM, QD
     Route: 042
     Dates: start: 20190506, end: 20190508

REACTIONS (6)
  - Nausea [Unknown]
  - Blood pressure decreased [Unknown]
  - Fatigue [Unknown]
  - Vomiting [Unknown]
  - Graft versus host disease [Unknown]
  - Hypophagia [Unknown]

NARRATIVE: CASE EVENT DATE: 20190930
